FAERS Safety Report 18607016 (Version 1)
Quarter: 2020Q4

REPORT INFORMATION
  Report Type: Spontaneous
  Country: DE (occurrence: DE)
  Receive Date: 20201211
  Receipt Date: 20201211
  Transmission Date: 20210114
  Serious: Yes (Other)
  Sender: FDA-Public Use
  Company Number: DE-GILEAD-2020-0508708

PATIENT
  Sex: Female

DRUGS (3)
  1. RANOLAZINE. [Suspect]
     Active Substance: RANOLAZINE
     Indication: VASCULAR GRAFT
  2. RANOLAZINE. [Suspect]
     Active Substance: RANOLAZINE
     Indication: CORONARY ARTERY DISEASE
     Dosage: 750 MG
     Route: 048
  3. RANOLAZINE. [Suspect]
     Active Substance: RANOLAZINE
     Indication: CORONARY ARTERIAL STENT INSERTION

REACTIONS (3)
  - Cardiac failure [Recovered/Resolved]
  - Echocardiogram abnormal [Recovered/Resolved]
  - Off label use [Recovered/Resolved]
